FAERS Safety Report 7302022-X (Version None)
Quarter: 2011Q1

REPORT INFORMATION
  Report Type: 
  Country: None (occurrence: None)
  Receive Date: 20110218
  Receipt Date: 20110215
  Transmission Date: 20110831
  Serious: Yes (Hospitalization, Other)
  Sender: FDA-Public Use
  Company Number: BR-PFIZER INC-2011033127

PATIENT
  Age: 76 Year
  Sex: Female
  Weight: 78 kg

DRUGS (3)
  1. LIPITOR [Suspect]
     Indication: BLOOD CHOLESTEROL INCREASED
  2. LIPITOR [Suspect]
     Indication: BLOOD TRIGLYCERIDES
     Dosage: HALF OF 40 MG TABLET PER DAY
     Route: 048
  3. LEXOTAN [Concomitant]
     Indication: SLEEP DISORDER
     Dosage: UNK
     Dates: start: 19910101, end: 20110201

REACTIONS (8)
  - MEMORY IMPAIRMENT [None]
  - PARKINSON'S DISEASE [None]
  - FACE INJURY [None]
  - DIZZINESS [None]
  - CEREBROVASCULAR ACCIDENT [None]
  - TREMOR [None]
  - FALL [None]
  - HEAD INJURY [None]
